APPROVED DRUG PRODUCT: YONDELIS
Active Ingredient: TRABECTEDIN
Strength: 1MG/VIAL
Dosage Form/Route: POWDER;INTRAVENOUS
Application: N207953 | Product #001
Applicant: JANSSEN PRODUCTS LP
Approved: Oct 23, 2015 | RLD: Yes | RS: Yes | Type: RX

PATENTS:
Patent 8895557 | Expires: Jan 7, 2028
Patent 8895557*PED | Expires: Jul 7, 2028